FAERS Safety Report 4340891-6 (Version None)
Quarter: 2004Q2

REPORT INFORMATION
  Report Type: 
  Country: None (occurrence: None)
  Receive Date: 20040414
  Receipt Date: 20040330
  Transmission Date: 20050107
  Serious: Yes (Congenital Anomaly, Other)
  Sender: FDA-Public Use
  Company Number: 2003-UK-00445UK

PATIENT
  Sex: Female

DRUGS (3)
  1. NEVIRAPINE (EU/1/97/055/001) (NEVIRAPINE) (NR) (NEVIRAPINE) [Suspect]
     Indication: LOCAL ANTIVIRAL TREATMENT
     Dosage: 200 MG; SEE IMAGE
     Route: 015
     Dates: start: 20030224, end: 20030309
  2. NEVIRAPINE (EU/1/97/055/001) (NEVIRAPINE) (NR) (NEVIRAPINE) [Suspect]
     Indication: LOCAL ANTIVIRAL TREATMENT
     Dosage: 200 MG; SEE IMAGE
     Route: 015
     Dates: start: 20030310
  3. COMBIVIR [Suspect]
     Indication: LOCAL ANTIVIRAL TREATMENT
     Dosage: 2 ANZ (ANZ, NOT REPORTED)
     Dates: start: 20030224, end: 20030502

REACTIONS (3)
  - AREFLEXIA [None]
  - DRUG EXPOSURE DURING PREGNANCY [None]
  - HIP DYSPLASIA [None]
